FAERS Safety Report 5715750-4 (Version None)
Quarter: 2008Q2

REPORT INFORMATION
  Report Type: 
  Country: None (occurrence: None)
  Receive Date: 20080423
  Receipt Date: 20080423
  Transmission Date: 20081010
  Serious: Yes (Hospitalization)
  Sender: FDA-Public Use
  Company Number: None

PATIENT
  Sex: Male
  Weight: 121 kg

DRUGS (3)
  1. FLUOROURACIL [Suspect]
     Dosage: 6720 MG
     Dates: end: 20080326
  2. LEUCOVORIN CALCIUM [Suspect]
     Dosage: 960 MG
     Dates: end: 20080326
  3. ELOXATIN [Suspect]
     Dosage: 200 MG
     Dates: end: 20080326

REACTIONS (6)
  - CLOSTRIDIAL INFECTION [None]
  - CULTURE STOOL POSITIVE [None]
  - DIARRHOEA [None]
  - DRUG TOXICITY [None]
  - HYPOTENSION [None]
  - HYPOVOLAEMIA [None]
